FAERS Safety Report 7234118-5 (Version None)
Quarter: 2011Q1

REPORT INFORMATION
  Report Type: 
  Country: None (occurrence: None)
  Receive Date: 20110119
  Receipt Date: 20101222
  Transmission Date: 20110831
  Serious: Yes (Other)
  Sender: FDA-Public Use
  Company Number: GB-VALEANT-2010VX002223

PATIENT
  Age: 24 Year
  Sex: Female

DRUGS (11)
  1. LIDOCAINE HYDROCHLORIDE IN PLASTIC CONTAINER [Suspect]
     Indication: ANAESTHESIA
     Route: 058
  2. PREDNISOLONE [Suspect]
     Route: 048
  3. HYDROCORTISONE [Suspect]
     Route: 042
  4. PYRIDOSTIGMINE BROMIDE [Suspect]
     Indication: MYASTHENIA GRAVIS
     Route: 048
  5. PREDNISOLONE [Suspect]
     Indication: MYASTHENIA GRAVIS
     Route: 048
  6. BUPIVACAINE HCL [Suspect]
     Route: 037
  7. DIAMORPHINE [Suspect]
     Route: 037
  8. BETAMETHASONE [Suspect]
     Indication: MYASTHENIA GRAVIS
     Route: 065
  9. INSULIN [Suspect]
     Route: 065
  10. IMMUNOGLOBULINS [Suspect]
     Indication: MYASTHENIA GRAVIS
     Route: 042
  11. PHENYLEPHRINE [Suspect]
     Indication: BLOOD PRESSURE MANAGEMENT
     Route: 042

REACTIONS (8)
  - PREMATURE LABOUR [None]
  - THYMUS ENLARGEMENT [None]
  - HYPERGLYCAEMIA [None]
  - ASTHENIA [None]
  - DRUG EXPOSURE DURING PREGNANCY [None]
  - CONDITION AGGRAVATED [None]
  - CAESAREAN SECTION [None]
  - POLYHYDRAMNIOS [None]
